FAERS Safety Report 4289286-4 (Version None)
Quarter: 2004Q1

REPORT INFORMATION
  Report Type: 
  Country: None (occurrence: None)
  Receive Date: 20040206
  Receipt Date: 20040126
  Transmission Date: 20041129
  Serious: Yes (Death)
  Sender: FDA-Public Use
  Company Number: 03P-087-0244621-00

PATIENT
  Age: 47 Year
  Sex: Male

DRUGS (7)
  1. KALETRA [Suspect]
     Indication: HIV INFECTION
     Dosage: 6 CAPSULE, PER ORAL
     Route: 048
     Dates: start: 20030425, end: 20031127
  2. LAMIVUDINE [Concomitant]
  3. STAVUDINE [Concomitant]
  4. NELFINAVIR MESILATE [Concomitant]
  5. BACTRIM [Concomitant]
  6. CYCLOPHOSPHAMIDE, DOXORUBICIN, VINCRISTINE, PREDNISOLONE [Concomitant]
  7. RITUXIMAB [Concomitant]

REACTIONS (1)
  - PNEUMOCYSTIS CARINII PNEUMONIA [None]
